FAERS Safety Report 10740982 (Version 6)
Quarter: 2015Q2

REPORT INFORMATION
  Report Type: Spontaneous
  Country: US (occurrence: US)
  Receive Date: 20150127
  Receipt Date: 20150402
  Transmission Date: 20150821
  Serious: Yes (Hospitalization, Other)
  Sender: FDA-Public Use
  Company Number: US-UNITED THERAPEUTICS-UNT-2014-012468

PATIENT
  Age: 36 Year
  Sex: Female
  Weight: 97.51 kg

DRUGS (7)
  1. COUMADIN [Concomitant]
     Active Substance: WARFARIN SODIUM
     Indication: PRODUCT USED FOR UNKNOWN INDICATION
  2. REMODULIN [Suspect]
     Active Substance: TREPROSTINIL
     Dosage: 0.028 ?G/KG, CONTINUING
     Route: 058
  3. TRACLEER [Concomitant]
     Active Substance: BOSENTAN\BOSENTAN MONOHYDRATE
     Indication: PRODUCT USED FOR UNKNOWN INDICATION
  4. REMODULIN [Suspect]
     Active Substance: TREPROSTINIL
     Dosage: 0.027 ?G/KG, CONTINUING
     Route: 041
     Dates: start: 20140315
  5. REMODULIN [Suspect]
     Active Substance: TREPROSTINIL
     Indication: PULMONARY ARTERIAL HYPERTENSION
     Dosage: 0.027 ?G/KG, CONTINUING
     Route: 041
     Dates: start: 20020903
  6. REMODULIN [Suspect]
     Active Substance: TREPROSTINIL
     Dosage: 0.026 ?G/KG, CONTINUING
     Route: 041
  7. REMODULIN [Suspect]
     Active Substance: TREPROSTINIL
     Dosage: 0.028 ?G/KG, CONTINUING
     Route: 041

REACTIONS (17)
  - Malaise [Unknown]
  - Infusion site nodule [Unknown]
  - Infusion site pain [Unknown]
  - Chest pain [Unknown]
  - Loss of consciousness [Unknown]
  - Infusion site haemorrhage [Unknown]
  - Deafness transitory [Unknown]
  - International normalised ratio increased [Unknown]
  - Device related infection [Unknown]
  - Infusion site erythema [Unknown]
  - Infusion site irritation [Unknown]
  - Drug dose omission [Unknown]
  - Haematemesis [Unknown]
  - Infusion site discolouration [Unknown]
  - Infusion site oedema [Unknown]
  - Medical device complication [Unknown]
  - Device dislocation [Unknown]

NARRATIVE: CASE EVENT DATE: 201412
